FAERS Safety Report 10926886 (Version 1)
Quarter: 2015Q1

REPORT INFORMATION
  Report Type: Spontaneous
  Country: BE (occurrence: BE)
  Receive Date: 20150318
  Receipt Date: 20150318
  Transmission Date: 20150721
  Serious: Yes (Hospitalization)
  Sender: FDA-Public Use
  Company Number: BE-OTSUKA-US-2015-11197

PATIENT

DRUGS (9)
  1. ABILIFY MAINTENA [Suspect]
     Active Substance: ARIPIPRAZOLE
     Indication: SCHIZOAFFECTIVE DISORDER
     Dosage: UNK, 1 TIME
     Route: 030
     Dates: start: 20141231, end: 20141231
  2. CAMCOLIT [Concomitant]
     Indication: PRODUCT USED FOR UNKNOWN INDICATION
     Dosage: UNK
     Route: 065
  3. ABILIFY [Suspect]
     Active Substance: ARIPIPRAZOLE
     Dosage: 10 MG MILLIGRAM(S), BID
     Route: 048
     Dates: start: 20141212
  4. ABILIFY [Suspect]
     Active Substance: ARIPIPRAZOLE
     Indication: SCHIZOAFFECTIVE DISORDER
     Dosage: 10 MG MILLIGRAM(S), QD
     Route: 048
     Dates: start: 20141129
  5. DEPAKINE CHRONO [Concomitant]
     Active Substance: VALPROATE SODIUM
     Indication: PRODUCT USED FOR UNKNOWN INDICATION
     Dosage: UNK
     Route: 065
  6. ETUMINE [Concomitant]
     Active Substance: CLOTHIAPINE
     Indication: PRODUCT USED FOR UNKNOWN INDICATION
     Dosage: UNK
     Route: 065
  7. KEMADRIN [Concomitant]
     Active Substance: PROCYCLIDINE HYDROCHLORIDE
     Indication: PRODUCT USED FOR UNKNOWN INDICATION
     Dosage: UNK
     Route: 065
  8. ABILIFY [Suspect]
     Active Substance: ARIPIPRAZOLE
     Dosage: 30 MG MILLIGRAM(S), QD
     Route: 048
     Dates: start: 20141219
  9. ABILIFY [Suspect]
     Active Substance: ARIPIPRAZOLE
     Dosage: 30 MG MILLIGRAM(S), QD
     Route: 048
     Dates: start: 20141231, end: 201501

REACTIONS (4)
  - Intentional product misuse [Recovered/Resolved]
  - Psychotic disorder [Recovered/Resolved]
  - Drug ineffective [Recovered/Resolved]
  - Off label use [Recovered/Resolved]
